FAERS Safety Report 6456616-4 (Version None)
Quarter: 2009Q4

REPORT INFORMATION
  Report Type: 
  Country: None (occurrence: None)
  Receive Date: 20091120
  Receipt Date: 20091104
  Transmission Date: 20100525
  Serious: Yes (Hospitalization)
  Sender: FDA-Public Use
  Company Number: SPV1-2009-02210

PATIENT
  Age: 16 Year
  Sex: Male

DRUGS (3)
  1. DAYTRANA [Suspect]
     Indication: ATTENTION DEFICIT/HYPERACTIVITY DISORDER
     Dosage: 1X/DAY:QD, TRANSDERMAL, 1X/DAY:QD 1/2 PATCH DAILY, TRANSDERMAL
     Route: 062
     Dates: start: 20070101, end: 20070101
  2. DAYTRANA [Suspect]
     Indication: ATTENTION DEFICIT/HYPERACTIVITY DISORDER
     Dosage: 1X/DAY:QD, TRANSDERMAL, 1X/DAY:QD 1/2 PATCH DAILY, TRANSDERMAL
     Route: 062
     Dates: start: 20071101, end: 20071101
  3. NATURAL SUPPLEMENTS [Concomitant]

REACTIONS (12)
  - ABNORMAL BEHAVIOUR [None]
  - ACTIVITIES OF DAILY LIVING IMPAIRED [None]
  - AGGRESSION [None]
  - BITE [None]
  - DRUG EFFECT INCREASED [None]
  - ENURESIS [None]
  - INCORRECT DOSE ADMINISTERED [None]
  - INSOMNIA [None]
  - MENTAL STATUS CHANGES [None]
  - OFF LABEL USE [None]
  - PSYCHOTIC DISORDER [None]
  - WRONG TECHNIQUE IN DRUG USAGE PROCESS [None]
